FAERS Safety Report 8182542 (Version 3)
Quarter: 2012Q4

REPORT INFORMATION
  Report Type: Report from Study
  Country: BR (occurrence: BR)
  Receive Date: 20111016
  Receipt Date: 20121228
  Transmission Date: 20130627
  Serious: Yes (Hospitalization)
  Sender: FDA-Public Use
  Company Number: BR-ROCHE-772162

PATIENT
  Age: 79 None
  Sex: Female
  Weight: 80 kg

DRUGS (16)
  1. RITUXIMAB [Suspect]
     Indication: PRODUCT USED FOR UNKNOWN INDICATION
     Route: 065
     Dates: start: 20100201, end: 201003
  2. PREDNISONE [Concomitant]
     Route: 065
  3. PREDNISONE [Concomitant]
     Route: 065
  4. ATORVASTATIN [Concomitant]
     Route: 065
  5. ACETYLSALICYLIC ACID [Concomitant]
     Route: 065
  6. FUROSEMIDE [Concomitant]
     Route: 065
  7. CITALOPRAM [Concomitant]
     Route: 065
  8. ALLOPURINOL [Concomitant]
     Route: 065
  9. NEBILET [Concomitant]
     Route: 065
  10. CLOPIDOGREL [Concomitant]
     Route: 065
  11. NARCARICIN [Concomitant]
     Dosage: REPORTED AS NARCARICINA
     Route: 065
  12. HALOPERIDOL [Concomitant]
  13. LIPLESS [Concomitant]
  14. LEXOTAN [Concomitant]
  15. CHLOROQUINE [Concomitant]
  16. FORASEQ [Concomitant]
     Route: 065

REACTIONS (5)
  - Myocardial infarction [Recovering/Resolving]
  - Emphysema [Recovered/Resolved]
  - Acute myocardial infarction [Recovered/Resolved]
  - Systemic lupus erythematosus [Not Recovered/Not Resolved]
  - Fatigue [Not Recovered/Not Resolved]
